FAERS Safety Report 4854733-3 (Version None)
Quarter: 2005Q4

REPORT INFORMATION
  Report Type: 
  Country: None (occurrence: None)
  Receive Date: 20051215
  Receipt Date: 20051118
  Transmission Date: 20060501
  Serious: Yes (Life-Threatening, Hospitalization, Other)
  Sender: FDA-Public Use
  Company Number: US-GLAXOSMITHKLINE-A0583486A

PATIENT
  Age: 22 Year
  Sex: Female
  Weight: 58.2 kg

DRUGS (3)
  1. LAMICTAL [Suspect]
     Indication: BIPOLAR DISORDER
     Route: 048
     Dates: start: 20051101, end: 20051113
  2. WELLBUTRIN [Suspect]
     Indication: DRUG USE FOR UNKNOWN INDICATION
     Route: 048
     Dates: start: 20050502, end: 20051113
  3. LEXAPRO [Concomitant]
     Route: 048
     Dates: start: 20050515, end: 20051113

REACTIONS (11)
  - AGITATION [None]
  - BODY TEMPERATURE INCREASED [None]
  - DECREASED INTEREST [None]
  - DRUG ABUSER [None]
  - IRRITABILITY [None]
  - MOOD SWINGS [None]
  - OVERDOSE [None]
  - SLEEP DISORDER [None]
  - STEVENS-JOHNSON SYNDROME [None]
  - SUICIDE ATTEMPT [None]
  - WEIGHT FLUCTUATION [None]
